FAERS Safety Report 8986091 (Version 1)
Quarter: 2012Q4

REPORT INFORMATION
  Report Type: Spontaneous
  Country: US (occurrence: None)
  Receive Date: 20121219
  Receipt Date: 20121219
  Transmission Date: 20130627
  Serious: No
  Sender: FDA-Public Use
  Company Number: None

PATIENT
  Sex: Female

DRUGS (1)
  1. HUMIRA [Suspect]
     Indication: RA
     Route: 058
     Dates: start: 20120830, end: 201211

REACTIONS (3)
  - Nausea [None]
  - Constipation [None]
  - Paraesthesia [None]
